FAERS Safety Report 9253060 (Version 1)
Quarter: 2013Q2

REPORT INFORMATION
  Report Type: Spontaneous
  Country: US (occurrence: US)
  Receive Date: 20130424
  Receipt Date: 20130424
  Transmission Date: 20140414
  Serious: Yes (Other)
  Sender: FDA-Public Use
  Company Number: CHPA2013US006692

PATIENT
  Age: 85 Year
  Sex: Female

DRUGS (2)
  1. KERI UNKNOWN [Suspect]
  2. PRADAXA [Suspect]
     Indication: DRY SKIN PROPHYLAXIS

REACTIONS (3)
  - Diabetes mellitus [Recovering/Resolving]
  - Atrial fibrillation [Recovering/Resolving]
  - Gingival bleeding [Recovered/Resolved]
